FAERS Safety Report 6162818-7 (Version None)
Quarter: 2009Q2

REPORT INFORMATION
  Report Type: 
  Country: None (occurrence: None)
  Receive Date: 20090421
  Receipt Date: 20090213
  Transmission Date: 20091009
  Serious: No
  Sender: FDA-Public Use
  Company Number: US-ASTRAZENECA-2009UW04297

PATIENT
  Sex: Female
  Weight: 77.1 kg

DRUGS (1)
  1. METOPROLOL SUCCINATE [Suspect]
     Dosage: 59 MG
     Route: 048

REACTIONS (4)
  - ANXIETY [None]
  - DIZZINESS [None]
  - HEADACHE [None]
  - MALAISE [None]
